FAERS Safety Report 4320884-5 (Version None)
Quarter: 2004Q1

REPORT INFORMATION
  Report Type: 
  Country: None (occurrence: None)
  Receive Date: 20040318
  Receipt Date: 20040310
  Transmission Date: 20041129
  Serious: Yes (Hospitalization)
  Sender: FDA-Public Use
  Company Number: 2003-03-3577

PATIENT
  Age: 72 Year
  Sex: Male

DRUGS (8)
  1. PEG-INTRON [Suspect]
     Indication: HEPATITIS C
     Dosage: 120 MCG QWK SUBCUTANEOUS
     Route: 058
     Dates: start: 20021110, end: 20040301
  2. REBETOL [Suspect]
     Indication: HEPATITIS C
     Dosage: 800 MG QD ORAL
     Route: 048
     Dates: start: 20021110, end: 20040201
  3. IBUPROFEN [Concomitant]
  4. VERAPAMIL [Concomitant]
  5. MULTI-VITAMINS [Concomitant]
  6. LISINOPRIL [Concomitant]
  7. HYDRODIURIL [Concomitant]
  8. TERAZOSIN HCL [Concomitant]

REACTIONS (7)
  - DERMATITIS EXFOLIATIVE [None]
  - DYSPNOEA [None]
  - EOSINOPHIL PERCENTAGE INCREASED [None]
  - HYPOXIA [None]
  - LUNG INFILTRATION [None]
  - PERIORBITAL OEDEMA [None]
  - PULMONARY FIBROSIS [None]
